FAERS Safety Report 11259557 (Version 1)
Quarter: 2015Q3

REPORT INFORMATION
  Report Type: Spontaneous
  Country: US (occurrence: US)
  Receive Date: 20150710
  Receipt Date: 20150710
  Transmission Date: 20151125
  Serious: Yes (Hospitalization, Other)
  Sender: FDA-Public Use
  Company Number: US-JNJFOC-20150705335

PATIENT
  Age: 69 Year
  Sex: Male

DRUGS (3)
  1. IRBESARTAN. [Concomitant]
     Active Substance: IRBESARTAN
     Indication: HYPERTENSION
     Route: 065
  2. RIVAROXABAN [Suspect]
     Active Substance: RIVAROXABAN
     Indication: ANTICOAGULANT THERAPY
     Route: 048
     Dates: start: 2013, end: 20140731
  3. FLECAINIDE [Concomitant]
     Active Substance: FLECAINIDE
     Indication: ATRIAL FIBRILLATION
     Route: 065

REACTIONS (5)
  - Spinal subdural haematoma [Not Recovered/Not Resolved]
  - Spinal cord haemorrhage [Unknown]
  - Myelitis transverse [Unknown]
  - Spinal cord compression [Unknown]
  - Spinal subarachnoid haemorrhage [Unknown]
